FAERS Safety Report 8082727-6 (Version None)
Quarter: 2012Q1

REPORT INFORMATION
  Report Type: 
  Country: None (occurrence: None)
  Receive Date: 20120127
  Receipt Date: 20110228
  Transmission Date: 20120608
  Serious: No
  Sender: FDA-Public Use
  Company Number: US-ABBOTT-11P-163-0708327-00

PATIENT
  Weight: 70.37 kg

DRUGS (3)
  1. HUMIRA [Suspect]
     Indication: RHEUMATOID ARTHRITIS
     Route: 058
     Dates: start: 20100301, end: 20110105
  2. METHOTREXATE [Concomitant]
     Indication: RHEUMATOID ARTHRITIS
     Dosage: EIGHT TABLETS ON MONDAYS
     Dates: end: 20110110
  3. METHOTREXATE [Concomitant]
     Dosage: EIGHT TABLETS ON MONDAYS
     Dates: start: 20110214

REACTIONS (5)
  - HYPOAESTHESIA [None]
  - EYE SWELLING [None]
  - BLISTER [None]
  - HERPES ZOSTER [None]
  - FACIAL PAIN [None]
